FAERS Safety Report 8028099-4 (Version None)
Quarter: 2012Q1

REPORT INFORMATION
  Report Type: 
  Country: None (occurrence: None)
  Receive Date: 20120106
  Receipt Date: 20100721
  Transmission Date: 20120608
  Serious: Yes (Other)
  Sender: FDA-Public Use
  Company Number: AU-ROCHE-1024065

PATIENT
  Age: 42 Year
  Sex: Male

DRUGS (5)
  1. FLUOROURACIL [Concomitant]
     Dates: start: 20090826, end: 20091021
  2. AVASTIN [Suspect]
     Indication: COLORECTAL CANCER METASTATIC
     Dates: start: 20090826, end: 20091021
  3. FLUOROURACIL [Concomitant]
     Dates: start: 20090826, end: 20091021
  4. OXALIPLATIN [Concomitant]
     Dates: start: 20090826, end: 20091021
  5. LEUCOVORIN CALCIUM [Concomitant]

REACTIONS (2)
  - EPISTAXIS [None]
  - DISEASE PROGRESSION [None]
